FAERS Safety Report 18371650 (Version 1)
Quarter: 2020Q4

REPORT INFORMATION
  Report Type: Spontaneous
  Country: US (occurrence: US)
  Receive Date: 20201012
  Receipt Date: 20201012
  Transmission Date: 20210114
  Serious: Yes (Death, Hospitalization, Other)
  Sender: FDA-Public Use
  Company Number: US-MACLEODS PHARMACEUTICALS US LTD-MAC2020028379

PATIENT

DRUGS (1)
  1. VENLAFAXINE [Suspect]
     Active Substance: VENLAFAXINE HYDROCHLORIDE
     Indication: PRODUCT USED FOR UNKNOWN INDICATION
     Dosage: 180 DOSAGE FORM, SINGLE, INGESTING 180 TABLETS OF 75 MG
     Route: 065

REACTIONS (6)
  - Seizure [Unknown]
  - Completed suicide [Fatal]
  - Postictal state [Unknown]
  - Ventricular tachycardia [Unknown]
  - Hypotension [Unknown]
  - Intentional overdose [Fatal]
